FAERS Safety Report 25724660 (Version 1)
Quarter: 2025Q3

REPORT INFORMATION
  Report Type: Spontaneous
  Country: EU (occurrence: EU)
  Receive Date: 20250826
  Receipt Date: 20250826
  Transmission Date: 20251020
  Serious: Yes (Death)
  Sender: TEVA
  Company Number: None

PATIENT
  Age: 23 Year
  Sex: Male

DRUGS (2)
  1. ESCITALOPRAM [Suspect]
     Active Substance: ESCITALOPRAM OXALATE
     Indication: Depression
     Dosage: 1DD1, BRAND NAME NOT SPECIFIED,
     Route: 048
     Dates: start: 20230701
  2. AMISULPRIDE [Suspect]
     Active Substance: AMISULPRIDE
     Indication: Psychotic disorder
     Dosage: 1DD1, BRAND NAME NOT SPECIFIED
     Route: 048
     Dates: start: 20240521

REACTIONS (1)
  - Myocarditis [Fatal]
